FAERS Safety Report 8220985-5 (Version None)
Quarter: 2012Q1

REPORT INFORMATION
  Report Type: 
  Country: None (occurrence: None)
  Receive Date: 20120320
  Receipt Date: 20120305
  Transmission Date: 20120608
  Serious: Yes (Hospitalization, Other)
  Sender: FDA-Public Use
  Company Number: DE-CELGENEUS-062-50794-10071752

PATIENT
  Age: 76 Year
  Sex: Male
  Weight: 85 kg

DRUGS (5)
  1. RED BLOOD CELLS [Concomitant]
     Indication: HAEMOCHROMATOSIS
     Route: 041
  2. VIDAZA [Suspect]
     Dosage: 75 MILLIGRAM/SQ. METER
     Route: 058
     Dates: start: 20100201, end: 20100205
  3. CEFTAZIDIME [Concomitant]
     Indication: NEUTROPENIA
     Route: 065
     Dates: start: 20100201
  4. GENTAMICIN [Concomitant]
     Indication: NEUTROPENIA
     Route: 065
     Dates: start: 20100201
  5. ZIENAM [Concomitant]
     Route: 065
     Dates: start: 20100201

REACTIONS (37)
  - IMPAIRED HEALING [None]
  - LYMPHADENOPATHY MEDIASTINAL [None]
  - OSTEOARTHRITIS [None]
  - HYPERTENSIVE HEART DISEASE [None]
  - HAEMATOCRIT DECREASED [None]
  - SPLENOMEGALY [None]
  - OSTEOSCLEROSIS [None]
  - BURSITIS [None]
  - ACUTE MYOCARDIAL INFARCTION [None]
  - NEUROPATHY PERIPHERAL [None]
  - GENERAL PHYSICAL HEALTH DETERIORATION [None]
  - ARTERIOSCLEROSIS [None]
  - ARTERIAL DISORDER [None]
  - TRICUSPID VALVE INCOMPETENCE [None]
  - SUPRAVENTRICULAR EXTRASYSTOLES [None]
  - ABSCESS [None]
  - SEPSIS [None]
  - CHEST PAIN [None]
  - VENTRICULAR HYPOKINESIA [None]
  - SYSTEMIC INFLAMMATORY RESPONSE SYNDROME [None]
  - OEDEMA PERIPHERAL [None]
  - NEUTROPENIA [None]
  - HAEMOGLOBIN DECREASED [None]
  - PLEURAL EFFUSION [None]
  - AORTIC ARTERIOSCLEROSIS [None]
  - MITRAL VALVE INCOMPETENCE [None]
  - AORTIC VALVE INCOMPETENCE [None]
  - SOFT TISSUE DISORDER [None]
  - PYODERMA GANGRENOSUM [None]
  - HEPATOMEGALY [None]
  - LYMPHOCYTE COUNT DECREASED [None]
  - LEFT VENTRICULAR HYPERTROPHY [None]
  - VENTRICULAR EXTRASYSTOLES [None]
  - PSYCHOMOTOR RETARDATION [None]
  - BLOOD CALCIUM DECREASED [None]
  - RED BLOOD CELL COUNT DECREASED [None]
  - HEPATIC CONGESTION [None]
